FAERS Safety Report 11718913 (Version 2)
Quarter: 2015Q4

REPORT INFORMATION
  Report Type: Report from Study
  Country: US (occurrence: US)
  Receive Date: 20151110
  Receipt Date: 20151119
  Transmission Date: 20160304
  Serious: No
  Sender: FDA-Public Use
  Company Number: US-GLAXOSMITHKLINE-US2015159348

PATIENT
  Age: 43 Year
  Sex: Female

DRUGS (5)
  1. SILDENAFIL. [Suspect]
     Active Substance: SILDENAFIL
     Indication: PULMONARY HYPERTENSION
     Dosage: 60 MG, UNK
     Route: 065
     Dates: start: 20151020
  2. SILDENAFIL. [Suspect]
     Active Substance: SILDENAFIL
     Dosage: 60 MG, TID
     Route: 065
     Dates: start: 20151021
  3. ISENTRESS [Suspect]
     Active Substance: RALTEGRAVIR POTASSIUM
     Indication: HIV INFECTION
     Dosage: 400 MG, BID
     Route: 065
     Dates: start: 20150116
  4. AMBRISENTAN TABLET [Suspect]
     Active Substance: AMBRISENTAN
     Indication: PULMONARY HYPERTENSION
     Dosage: 5 MG, QD
     Route: 065
     Dates: start: 20151024, end: 20151104
  5. EPZICOM [Suspect]
     Active Substance: ABACAVIR SULFATE\LAMIVUDINE
     Indication: HIV INFECTION
     Dosage: 600300 MG, QD
     Route: 065
     Dates: start: 20150116

REACTIONS (3)
  - Dyspnoea [Unknown]
  - Drug interaction [Unknown]
  - Fatigue [Unknown]

NARRATIVE: CASE EVENT DATE: 20151029
